FAERS Safety Report 9153005 (Version 1)
Quarter: 2013Q1

REPORT INFORMATION
  Report Type: Spontaneous
  Country: US (occurrence: None)
  Receive Date: 20130301
  Receipt Date: 20130301
  Transmission Date: 20140127
  Serious: Yes (Other)
  Sender: FDA-Public Use
  Company Number: None

PATIENT
  Age: 52 Year
  Sex: Female
  Weight: 72.58 kg

DRUGS (6)
  1. LORATADINE [Suspect]
     Indication: SEASONAL ALLERGY
     Dosage: 1TABLET  DAILY  PO
     Route: 048
     Dates: start: 20130221, end: 20130228
  2. LORATADINE [Suspect]
     Indication: UPPER-AIRWAY COUGH SYNDROME
     Dosage: 1TABLET  DAILY  PO
     Route: 048
     Dates: start: 20130221, end: 20130228
  3. LORATADINE [Suspect]
     Dosage: 1TABLET  DAILY  PO
     Route: 048
     Dates: start: 20130221, end: 20130228
  4. SYNTHROID [Concomitant]
  5. KEFLEX [Concomitant]
  6. ASPIRIN [Concomitant]

REACTIONS (4)
  - Palpitations [None]
  - Wrong technique in drug usage process [None]
  - Drug effect increased [None]
  - Chest discomfort [None]
